FAERS Safety Report 24014402 (Version 1)
Quarter: 2024Q2

REPORT INFORMATION
  Report Type: Spontaneous
  Country: AU (occurrence: AU)
  Receive Date: 20240626
  Receipt Date: 20240626
  Transmission Date: 20240715
  Serious: Yes (Hospitalization, Other)
  Sender: FDA-Public Use
  Company Number: AU-SUN PHARMACEUTICAL INDUSTRIES LTD-2024R1-452268

PATIENT
  Age: 46 Week
  Sex: Male
  Weight: 3.465 kg

DRUGS (4)
  1. INSULIN NOS [Suspect]
     Active Substance: INSULIN NOS
     Indication: Type 1 diabetes mellitus
     Route: 064
  2. NIFEDIPINE [Suspect]
     Active Substance: NIFEDIPINE
     Indication: Hypertension
     Route: 064
  3. DARBEPOETIN ALFA [Suspect]
     Active Substance: DARBEPOETIN ALFA
     Indication: Chronic kidney disease
     Route: 064
  4. IRON [Suspect]
     Active Substance: IRON
     Indication: Anaemia
     Route: 064

REACTIONS (8)
  - Cytomegalovirus hepatitis [Unknown]
  - Premature baby [Unknown]
  - Retinopathy of prematurity [Unknown]
  - Intraventricular haemorrhage neonatal [Unknown]
  - Newborn persistent pulmonary hypertension [Unknown]
  - Apnoea [Unknown]
  - Bronchopulmonary dysplasia [Unknown]
  - Foetal exposure during pregnancy [Unknown]
